FAERS Safety Report 13068750 (Version 4)
Quarter: 2017Q1

REPORT INFORMATION
  Report Type: Report from Study
  Country: GB (occurrence: GB)
  Receive Date: 20161228
  Receipt Date: 20170202
  Transmission Date: 20170428
  Serious: No
  Sender: FDA-Public Use
  Company Number: GB-JNJFOC-20161223025

PATIENT
  Sex: Female
  Weight: 96 kg

DRUGS (2)
  1. STELARA [Suspect]
     Active Substance: USTEKINUMAB
     Indication: PRODUCT USED FOR UNKNOWN INDICATION
     Route: 058
  2. STELARA [Suspect]
     Active Substance: USTEKINUMAB
     Indication: PRODUCT USED FOR UNKNOWN INDICATION
     Route: 058

REACTIONS (5)
  - Condition aggravated [Unknown]
  - Skin lesion [Unknown]
  - Off label use [Unknown]
  - Incorrect dose administered [Unknown]
  - Drug ineffective [Unknown]
